FAERS Safety Report 21820012 (Version 12)
Quarter: 2024Q4

REPORT INFORMATION
  Report Type: Report from Study
  Country: GB (occurrence: GB)
  Receive Date: 20230104
  Receipt Date: 20241030
  Transmission Date: 20250115
  Serious: Yes (Hospitalization)
  Sender: ROCHE
  Company Number: GB-ROCHE-3256211

PATIENT
  Age: 73 Year
  Sex: Male
  Weight: 92.3 kg

DRUGS (2)
  1. ATEZOLIZUMAB [Suspect]
     Active Substance: ATEZOLIZUMAB
     Indication: Hepatocellular carcinoma
     Dosage: ON 08/DEC/2022, RECEIVED MOST RECENT DOSE 1400 MG OF ATEZOLIZUMAB (IV) PRIOR TO ADVERSE EVENT (AE) A
     Route: 041
     Dates: start: 20221208
  2. BEVACIZUMAB [Suspect]
     Active Substance: BEVACIZUMAB
     Indication: Hepatocellular carcinoma
     Route: 065
     Dates: start: 20221208

REACTIONS (4)
  - Diarrhoea [Recovered/Resolved]
  - Upper gastrointestinal haemorrhage [Not Recovered/Not Resolved]
  - Acute kidney injury [Recovered/Resolved]
  - Ilium fracture [Recovered/Resolved]

NARRATIVE: CASE EVENT DATE: 20221216
